FAERS Safety Report 9949632 (Version 2)
Quarter: 2014Q1

REPORT INFORMATION
  Report Type: Spontaneous
  Country: DE (occurrence: DE)
  Receive Date: 20140304
  Receipt Date: 20140326
  Transmission Date: 20141002
  Serious: Yes (Hospitalization)
  Sender: FDA-Public Use
  Company Number: DE-BAYER-2014-032759

PATIENT
  Age: 46 Year
  Sex: Male
  Weight: 126 kg

DRUGS (4)
  1. XOFIGO [Suspect]
     Indication: PROSTATE CANCER
     Dosage: 6.6 ML CORRESPONDS 6242 KBQ
     Route: 042
     Dates: start: 20140129
  2. XOFIGO [Suspect]
     Indication: METASTASES TO BONE
     Dosage: UNK
     Route: 042
     Dates: start: 20140226
  3. BISOPROLOL [Concomitant]
     Dosage: 5 MG, QD
  4. CELEBREX [Concomitant]

REACTIONS (1)
  - Atrial fibrillation [Recovered/Resolved]
